FAERS Safety Report 24444386 (Version 2)
Quarter: 2024Q4

REPORT INFORMATION
  Report Type: Report from Study
  Country: US (occurrence: US)
  Receive Date: 20241016
  Receipt Date: 20241017
  Transmission Date: 20250115
  Serious: No
  Sender: ROCHE
  Company Number: US-ROCHE-2718681

PATIENT
  Age: 35 Year
  Sex: Female

DRUGS (8)
  1. RITUXAN [Suspect]
     Active Substance: RITUXIMAB
     Indication: Cutaneous vasculitis
     Dosage: 10 MG/ML VIAL, ONGOING: NO, TREATMENT WAS ON HOLD.?LAST DOSE OF RITUXAN WAS IN /MAR/2022? FREQUENCY
     Route: 042
     Dates: start: 20201104
  2. RITUXAN [Suspect]
     Active Substance: RITUXIMAB
     Indication: Polyarthritis
     Route: 042
     Dates: start: 201908
  3. RITUXAN [Suspect]
     Active Substance: RITUXIMAB
     Indication: Vasculitis necrotising
  4. ASPIRIN [Concomitant]
     Active Substance: ASPIRIN
  5. ALBUTEROL [Concomitant]
     Active Substance: ALBUTEROL
  6. BUPROPION [Concomitant]
     Active Substance: BUPROPION
  7. METFORMIN [Concomitant]
     Active Substance: METFORMIN HYDROCHLORIDE
  8. RYBELSUS [Concomitant]
     Active Substance: SEMAGLUTIDE

REACTIONS (3)
  - Off label use [Unknown]
  - Maternal exposure before pregnancy [Unknown]
  - No adverse event [Unknown]
